FAERS Safety Report 8334661-1 (Version None)
Quarter: 2012Q2

REPORT INFORMATION
  Report Type: 
  Country: None (occurrence: None)
  Receive Date: 20120503
  Receipt Date: 20120426
  Transmission Date: 20120825
  Serious: Yes (Hospitalization, Other)
  Sender: FDA-Public Use
  Company Number: US-MERCK-1110USA04124

PATIENT
  Age: 59 Year
  Sex: Female

DRUGS (3)
  1. FOSAMAX [Suspect]
     Indication: OSTEOPENIA
     Route: 048
     Dates: start: 20030101, end: 20080401
  2. FOSAMAX [Suspect]
     Route: 048
     Dates: start: 20080101, end: 20100101
  3. ACTONEL [Suspect]
     Indication: OSTEOPENIA
     Route: 048
     Dates: start: 19990101, end: 20031201

REACTIONS (7)
  - DEPRESSION [None]
  - BLOOD CHOLESTEROL INCREASED [None]
  - FEMUR FRACTURE [None]
  - FRACTURE NONUNION [None]
  - TOOTH FRACTURE [None]
  - PUBIS FRACTURE [None]
  - LOW TURNOVER OSTEOPATHY [None]
